FAERS Safety Report 8531035-5 (Version None)
Quarter: 2012Q3

REPORT INFORMATION
  Report Type: 
  Country: None (occurrence: None)
  Receive Date: 20120723
  Receipt Date: 20120716
  Transmission Date: 20120928
  Serious: Yes (Hospitalization)
  Sender: FDA-Public Use
  Company Number: US-GILEAD-2012-0058093

PATIENT
  Sex: Female

DRUGS (1)
  1. LETAIRIS [Suspect]
     Indication: PULMONARY HYPERTENSION
     Dosage: 5 MG, UNK
     Route: 048
     Dates: start: 20111207

REACTIONS (5)
  - PNEUMONIA [None]
  - EXTERNAL EAR DISORDER [None]
  - DYSPNOEA EXERTIONAL [None]
  - NO THERAPEUTIC RESPONSE [None]
  - DRY SKIN [None]
